FAERS Safety Report 4556758-4 (Version None)
Quarter: 2005Q1

REPORT INFORMATION
  Report Type: 
  Country: None (occurrence: None)
  Receive Date: 20050114
  Receipt Date: 20050107
  Transmission Date: 20050727
  Serious: Yes (Other)
  Sender: FDA-Public Use
  Company Number: 2005007937

PATIENT
  Age: 52 Year
  Sex: Female
  Weight: 78.0187 kg

DRUGS (8)
  1. LIPITOR [Suspect]
     Indication: LOW DENSITY LIPOPROTEIN INCREASED
     Dosage: 10 MG (10 MG, 1 IN 1 D), ORAL
     Route: 048
     Dates: start: 20000310, end: 20041124
  2. ROSILGLITAZONE MALEATE (ROSIGLITAZONE MALEATE) [Concomitant]
  3. METFORMIN HCL [Concomitant]
  4. ASPIRIN [Concomitant]
  5. CALCIUM (CALCIUM) [Concomitant]
  6. LISINOPRIL [Concomitant]
  7. INSULIN LISPRO (INSULIN LISPRO) [Concomitant]
  8. INSULIN GLARGINE (INSULIN GLARGINE) [Concomitant]

REACTIONS (1)
  - RHABDOMYOLYSIS [None]
